FAERS Safety Report 7303920-3 (Version None)
Quarter: 2011Q1

REPORT INFORMATION
  Report Type: 
  Country: None (occurrence: None)
  Receive Date: 20110221
  Receipt Date: 20110211
  Transmission Date: 20110831
  Serious: Yes (Hospitalization)
  Sender: FDA-Public Use
  Company Number: FR-ROCHE-759602

PATIENT
  Sex: Male
  Weight: 59.6 kg

DRUGS (12)
  1. EVEROLIMUS [Suspect]
     Route: 048
     Dates: start: 20101129
  2. PREDNISONE [Suspect]
     Route: 048
     Dates: start: 20101201
  3. PLAQUENIL [Concomitant]
     Dates: start: 20101217
  4. MOPRAL [Concomitant]
     Dates: start: 20101126
  5. TARDYFERON [Concomitant]
     Dates: start: 20101129
  6. AMLOR [Concomitant]
     Dates: start: 20101115
  7. PREVISCAN [Concomitant]
     Dates: start: 20110112
  8. MYCOPHENOLATE MOFETIL [Suspect]
     Route: 048
     Dates: start: 20101124
  9. ROVALCYTE [Concomitant]
     Dates: start: 20101120
  10. BISOPROLOL FUMARATE [Concomitant]
     Dates: start: 20101129
  11. OMIX [Concomitant]
     Dates: start: 20101130
  12. BACTRIM [Concomitant]
     Dates: start: 20101127

REACTIONS (1)
  - TRANSPLANT REJECTION [None]
